FAERS Safety Report 22008492 (Version 3)
Quarter: 2023Q2

REPORT INFORMATION
  Report Type: Report from Study
  Country: US (occurrence: US)
  Receive Date: 20230219
  Receipt Date: 20230616
  Transmission Date: 20230722
  Serious: No
  Sender: FDA-Public Use
  Company Number: US-002147023-NVSC2023US033671

PATIENT
  Age: 75 Year
  Sex: Female

DRUGS (1)
  1. LEQVIO [Suspect]
     Active Substance: INCLISIRAN SODIUM
     Indication: Product used for unknown indication
     Dosage: UNK
     Route: 058
     Dates: start: 20230113

REACTIONS (6)
  - SARS-CoV-2 test positive [Unknown]
  - Arthralgia [Unknown]
  - Back pain [Unknown]
  - Oropharyngeal pain [Unknown]
  - Sciatica [Unknown]
  - Back disorder [Unknown]

NARRATIVE: CASE EVENT DATE: 20230113
